FAERS Safety Report 6371601-9 (Version None)
Quarter: 2009Q3

REPORT INFORMATION
  Report Type: 
  Country: None (occurrence: None)
  Receive Date: 20090923
  Receipt Date: 20080103
  Transmission Date: 20100115
  Serious: Yes (Other)
  Sender: FDA-Public Use
  Company Number: US-ASTRAZENECA-2007UW18023

PATIENT
  Age: 453 Month
  Sex: Female

DRUGS (10)
  1. SEROQUEL [Suspect]
     Indication: ANXIETY
     Route: 048
     Dates: start: 20060213
  2. ROZEREM [Concomitant]
     Route: 048
     Dates: start: 20060106
  3. WELLBUTRIN [Concomitant]
     Route: 048
     Dates: start: 20060106
  4. CAMPRAL [Concomitant]
     Route: 048
     Dates: start: 20060106
  5. TRAZODONE [Concomitant]
     Indication: INSOMNIA
     Dosage: AS NEEDED
     Route: 048
     Dates: start: 20060201
  6. ATIVAN [Concomitant]
     Route: 048
     Dates: start: 20050302
  7. CYMBALTA [Concomitant]
     Route: 048
     Dates: start: 20050302
  8. ZYPREXA [Concomitant]
     Route: 048
     Dates: start: 20050302
  9. ANTABUSE [Concomitant]
     Route: 048
     Dates: start: 20050509
  10. NALTREXONE HYDROCHLORIDE [Concomitant]
     Route: 048
     Dates: start: 20050509

REACTIONS (1)
  - PANCREATITIS ACUTE [None]
